FAERS Safety Report 18459363 (Version 2)
Quarter: 2020Q4

REPORT INFORMATION
  Report Type: Spontaneous
  Country: US (occurrence: US)
  Receive Date: 20201103
  Receipt Date: 20201230
  Transmission Date: 20210114
  Serious: No
  Sender: FDA-Public Use
  Company Number: US-GLAXOSMITHKLINE-US2020AMR214672

PATIENT
  Sex: Female

DRUGS (2)
  1. ZEJULA [Suspect]
     Active Substance: NIRAPARIB
     Indication: OVARIAN CANCER
     Dosage: 200 MG
     Route: 048
     Dates: start: 20200730
  2. ZEJULA [Suspect]
     Active Substance: NIRAPARIB
     Dosage: 200 UNK
     Dates: start: 2020

REACTIONS (2)
  - Feeling abnormal [Unknown]
  - Product dose omission in error [Unknown]
